FAERS Safety Report 25944948 (Version 1)
Quarter: 2025Q4

REPORT INFORMATION
  Report Type: Spontaneous
  Country: US (occurrence: US)
  Receive Date: 20251021
  Receipt Date: 20251021
  Transmission Date: 20260117
  Serious: No
  Sender: Phathom Pharmaceuticals
  Company Number: US-PHATHOM PHARMACEUTICALS INC.-2025PHT02703

PATIENT
  Age: 70 Year
  Sex: Male
  Weight: 85.669 kg

DRUGS (1)
  1. VOQUEZNA [Suspect]
     Active Substance: VONOPRAZAN FUMARATE
     Indication: Gastrooesophageal reflux disease
     Dosage: 10 MG, 1X/DAY
     Route: 048
     Dates: start: 20250915, end: 20250917

REACTIONS (3)
  - Illness [Unknown]
  - Oropharyngeal pain [Unknown]
  - Ear pain [Unknown]

NARRATIVE: CASE EVENT DATE: 20250901
